FAERS Safety Report 6570047-8 (Version None)
Quarter: 2010Q1

REPORT INFORMATION
  Report Type: 
  Country: None (occurrence: None)
  Receive Date: 20100204
  Receipt Date: 20100201
  Transmission Date: 20100710
  Serious: Yes (Hospitalization)
  Sender: FDA-Public Use
  Company Number: DE-ROCHE-681721

PATIENT
  Sex: Female
  Weight: 66.1 kg

DRUGS (5)
  1. BONIVA [Suspect]
     Indication: OSTEOPOROSIS
     Route: 042
     Dates: start: 20091202
  2. METOPROLOL SUCCINATE [Concomitant]
     Route: 048
  3. PANTOPRAZOLE [Concomitant]
     Route: 048
  4. DIOVAN HCT [Concomitant]
     Route: 048
  5. MIRTAZAPINE [Concomitant]
     Indication: DEPRESSION
     Route: 048

REACTIONS (1)
  - HYPERTENSIVE CRISIS [None]
